FAERS Safety Report 15167855 (Version 3)
Quarter: 2019Q1

REPORT INFORMATION
  Report Type: Report from Study
  Country: US (occurrence: US)
  Receive Date: 20180719
  Receipt Date: 20190127
  Transmission Date: 20190417
  Serious: Yes (Other)
  Sender: FDA-Public Use
  Company Number: PHEH2018US029579

PATIENT
  Sex: Male

DRUGS (1)
  1. GILENYA [Suspect]
     Active Substance: FINGOLIMOD HYDROCHLORIDE
     Indication: MULTIPLE SCLEROSIS
     Dosage: 0.5 MG, QD
     Route: 048
     Dates: start: 20180626

REACTIONS (5)
  - Dermatitis [Unknown]
  - Concomitant disease aggravated [Unknown]
  - Heart rate decreased [Unknown]
  - Lymphocyte count decreased [Unknown]
  - Weight decreased [Unknown]
